FAERS Safety Report 5355874-7 (Version None)
Quarter: 2007Q2

REPORT INFORMATION
  Report Type: 
  Country: None (occurrence: None)
  Receive Date: 20070530
  Receipt Date: 20070327
  Transmission Date: 20071010
  Serious: Yes (Hospitalization)
  Sender: FDA-Public Use
  Company Number: US200703005773

PATIENT
  Age: 30 Year
  Sex: Male

DRUGS (3)
  1. ZYPREXA [Suspect]
     Indication: SCHIZOPHRENIA
     Dosage: 15 MG, DAILY (1/D), UNK
  2. DEPAKOTE [Concomitant]
  3. PAXIL [Concomitant]

REACTIONS (6)
  - AGGRESSION [None]
  - AGITATION [None]
  - DRUG SCREEN POSITIVE [None]
  - OVERDOSE [None]
  - PSYCHOTIC DISORDER [None]
  - SEDATION [None]
